FAERS Safety Report 7410829-3 (Version None)
Quarter: 2011Q2

REPORT INFORMATION
  Report Type: 
  Country: None (occurrence: None)
  Receive Date: 20110413
  Receipt Date: 20110412
  Transmission Date: 20111010
  Serious: No
  Sender: FDA-Public Use
  Company Number: US-PFIZER INC-2011080386

PATIENT
  Sex: Male

DRUGS (1)
  1. ADVIL LIQUI-GELS [Suspect]
     Indication: PYREXIA
     Dosage: 1 TSP DAILY
     Route: 048
     Dates: start: 20110412

REACTIONS (1)
  - SOMNOLENCE [None]
